FAERS Safety Report 6079053-3 (Version None)
Quarter: 2009Q1

REPORT INFORMATION
  Report Type: 
  Country: None (occurrence: None)
  Receive Date: 20090216
  Receipt Date: 20090203
  Transmission Date: 20090719
  Serious: Yes (Hospitalization)
  Sender: FDA-Public Use
  Company Number: FR-ROCHE-612574

PATIENT
  Sex: Female
  Weight: 62 kg

DRUGS (1)
  1. CAPECITABINE [Suspect]
     Indication: COLORECTAL CANCER
     Dosage: LAST DOSE PRIOR TO SAE WAS ON 31 JULY 2008; CUMULATIVE DOSE RPTD AS 62.4 MG
     Route: 048
     Dates: start: 20080626

REACTIONS (1)
  - FEMALE GENITAL TRACT FISTULA [None]
